FAERS Safety Report 14038840 (Version 2)
Quarter: 2017Q4

REPORT INFORMATION
  Report Type: Spontaneous
  Country: US (occurrence: US)
  Receive Date: 20171004
  Receipt Date: 20171218
  Transmission Date: 20180321
  Serious: No
  Sender: FDA-Public Use
  Company Number: US-ELI_LILLY_AND_COMPANY-US201709009472

PATIENT
  Age: 74 Year
  Sex: Female
  Weight: 94 kg

DRUGS (1)
  1. INSULIN, LISPRO [Suspect]
     Active Substance: INSULIN LISPRO
     Indication: TYPE 2 DIABETES MELLITUS
     Dosage: 2 U, PRN
     Route: 058
     Dates: start: 20170814

REACTIONS (1)
  - Drug dose omission [Unknown]
